FAERS Safety Report 5706008-8 (Version None)
Quarter: 2008Q2

REPORT INFORMATION
  Report Type: 
  Country: None (occurrence: None)
  Receive Date: 20080415
  Receipt Date: 20080404
  Transmission Date: 20081010
  Serious: Yes (Hospitalization)
  Sender: FDA-Public Use
  Company Number: PHRM2008FR01230

PATIENT
  Age: 75 Year
  Sex: Male

DRUGS (4)
  1. ZOMETA [Suspect]
     Indication: MULTIPLE MYELOMA
     Dosage: 12 COURSES OF TREATMENT
     Route: 042
     Dates: start: 20040401, end: 20051101
  2. LYTOS [Concomitant]
     Indication: MULTIPLE MYELOMA
     Dates: start: 20020101
  3. LYTOS [Concomitant]
     Dates: start: 20030101
  4. LYTOS [Concomitant]
     Dates: start: 20040101

REACTIONS (3)
  - BONE EROSION [None]
  - OSTEONECROSIS [None]
  - TOOTH EXTRACTION [None]
